FAERS Safety Report 10078904 (Version 1)
Quarter: 2014Q2

REPORT INFORMATION
  Report Type: Spontaneous
  Country: TW (occurrence: None)
  Receive Date: 20140411
  Receipt Date: 20140411
  Transmission Date: 20141212
  Serious: Yes (Other)
  Sender: FDA-Public Use
  Company Number: TW-LHC-2014025

PATIENT
  Age: 3 Month
  Sex: Male
  Weight: 2.58 kg

DRUGS (4)
  1. CARBON DIOXIDE [Suspect]
     Indication: LAPAROSCOPIC SURGERY
     Dosage: INSUFFLATION
  2. SEVOLURANE [Concomitant]
  3. ATROPINE [Concomitant]
  4. KETAMINE [Concomitant]

REACTIONS (12)
  - Pneumomediastinum [None]
  - Heart rate decreased [None]
  - Oxygen saturation decreased [None]
  - End-tidal CO2 decreased [None]
  - Electrocardiogram QRS complex prolonged [None]
  - Supraventricular extrasystoles [None]
  - Electrocardiogram ST segment elevation [None]
  - Pulse abnormal [None]
  - Subcutaneous emphysema [None]
  - Hypotension [None]
  - Breath sounds abnormal [None]
  - Haemodynamic instability [None]
